FAERS Safety Report 25522197 (Version 1)
Quarter: 2025Q3

REPORT INFORMATION
  Report Type: Spontaneous
  Country: EU (occurrence: EU)
  Receive Date: 20250707
  Receipt Date: 20250707
  Transmission Date: 20251021
  Serious: Yes (Other)
  Sender: TEVA
  Company Number: None

PATIENT
  Age: 5 Year
  Sex: Female

DRUGS (1)
  1. AMOXICILLIN [Suspect]
     Active Substance: AMOXICILLIN
     Indication: Allergy test
     Dosage: AMOXICILLIN (108A)
     Route: 048
     Dates: start: 20250416, end: 20250422

REACTIONS (1)
  - Serum sickness [Recovering/Resolving]

NARRATIVE: CASE EVENT DATE: 20250425
